FAERS Safety Report 22150363 (Version 1)
Quarter: 2023Q1

REPORT INFORMATION
  Report Type: Spontaneous
  Country: US (occurrence: US)
  Receive Date: 20230329
  Receipt Date: 20230329
  Transmission Date: 20230417
  Serious: Yes (Other)
  Sender: FDA-Public Use
  Company Number: US-SA-SAC20230328000449

PATIENT
  Age: 82 Year
  Sex: Female

DRUGS (1)
  1. DUPIXENT [Suspect]
     Active Substance: DUPILUMAB
     Indication: Asthma
     Dosage: 300 MG, OTHER
     Route: 058
     Dates: start: 202303

REACTIONS (6)
  - Cerebrovascular accident [Unknown]
  - Fatigue [Recovered/Resolved]
  - Feeling abnormal [Unknown]
  - Confusional state [Unknown]
  - Memory impairment [Unknown]
  - Hypersomnia [Unknown]

NARRATIVE: CASE EVENT DATE: 20230301
